FAERS Safety Report 20161767 (Version 1)
Quarter: 2021Q4

REPORT INFORMATION
  Report Type: Spontaneous
  Country: IL (occurrence: IL)
  Receive Date: 20211208
  Receipt Date: 20211208
  Transmission Date: 20220303
  Serious: Yes (Other)
  Sender: FDA-Public Use
  Company Number: IL-TAKEDA-2021TJP124557

PATIENT
  Age: 33 Year
  Sex: Male

DRUGS (1)
  1. LEUPROLIDE ACETATE [Suspect]
     Active Substance: LEUPROLIDE ACETATE
     Indication: Infertility
     Dosage: UNK
     Route: 065

REACTIONS (3)
  - Papilloedema [Recovered/Resolved]
  - Headache [Recovered/Resolved]
  - Visual field defect [Recovered/Resolved]
